FAERS Safety Report 6543369-4 (Version None)
Quarter: 2010Q1

REPORT INFORMATION
  Report Type: 
  Country: None (occurrence: None)
  Receive Date: 20100106
  Receipt Date: 20091223
  Transmission Date: 20100710
  Serious: No
  Sender: FDA-Public Use
  Company Number: 2009-00908

PATIENT
  Age: 41 Year
  Sex: Male
  Weight: 131.5431 kg

DRUGS (1)
  1. COLD REMEDY RAPID MELTS WITH VITAMIN C AND ECHINACEA [Suspect]
     Dosage: SPORADIC - 1 YEAR, ^LAST YEAR^ - RECENT

REACTIONS (1)
  - AGEUSIA [None]
